FAERS Safety Report 9471203 (Version 1)
Quarter: 2013Q3

REPORT INFORMATION
  Report Type: Spontaneous
  Country: US (occurrence: None)
  Receive Date: 20130816
  Receipt Date: 20130816
  Transmission Date: 20140515
  Serious: Yes (Other)
  Sender: FDA-Public Use
  Company Number: 2013-000224

PATIENT
  Age: 62 Year
  Sex: Female
  Weight: 80.7 kg

DRUGS (2)
  1. ACTONEL [Suspect]
     Route: 048
     Dates: start: 2008, end: 200810
  2. FOSAMAX [Suspect]
     Dates: start: 200810, end: 201109

REACTIONS (9)
  - Femur fracture [None]
  - Fracture displacement [None]
  - Avulsion fracture [None]
  - Fall [None]
  - Fracture delayed union [None]
  - Pathological fracture [None]
  - Stress fracture [None]
  - Bone disorder [None]
  - Low turnover osteopathy [None]
